FAERS Safety Report 7120710-5 (Version None)
Quarter: 2010Q4

REPORT INFORMATION
  Report Type: 
  Country: None (occurrence: None)
  Receive Date: 20101124
  Receipt Date: 20101117
  Transmission Date: 20110411
  Serious: Yes (Hospitalization)
  Sender: FDA-Public Use
  Company Number: US-US-EMD SERONO, INC.-7028315

PATIENT
  Sex: Female
  Weight: 84 kg

DRUGS (7)
  1. REBIF [Suspect]
     Indication: MULTIPLE SCLEROSIS
     Route: 058
     Dates: start: 20050801, end: 20060201
  2. REBIF [Suspect]
     Route: 058
     Dates: start: 20061113
  3. MULTI-VITAMIN [Concomitant]
  4. PROVIGIL [Concomitant]
  5. GABAPENTIN [Concomitant]
     Indication: CONVULSION
  6. ALEVE (CAPLET) [Concomitant]
     Indication: PREMEDICATION
  7. TYLENOL (CAPLET) [Concomitant]
     Indication: PREMEDICATION

REACTIONS (5)
  - GASTROOESOPHAGEAL REFLUX DISEASE [None]
  - INFLUENZA LIKE ILLNESS [None]
  - INSOMNIA [None]
  - INTERVERTEBRAL DISC PROTRUSION [None]
  - NODULE [None]
